FAERS Safety Report 8369765-0 (Version None)
Quarter: 2012Q2

REPORT INFORMATION
  Report Type: 
  Country: None (occurrence: None)
  Receive Date: 20120518
  Receipt Date: 20120507
  Transmission Date: 20120825
  Serious: Yes (Other)
  Sender: FDA-Public Use
  Company Number: ES-PFIZER INC-2012114909

PATIENT
  Age: 76 Year
  Sex: Male

DRUGS (7)
  1. CELECOXIB [Interacting]
     Indication: OSTEOARTHRITIS
     Dosage: 200 MG, 1X/DAY
     Route: 048
  2. CARDURA [Suspect]
     Indication: HYPERTENSIVE HEART DISEASE
     Dosage: 8 MG, 1X/DAY
     Route: 048
  3. SINTROM [Interacting]
     Indication: PULMONARY EMBOLISM
     Dosage: UNK
     Route: 048
  4. REVATIO [Interacting]
     Indication: PULMONARY HYPERTENSION
     Dosage: 60 MG, DAILY
     Route: 048
     Dates: start: 20120316, end: 20120326
  5. NOLOTIL /SPA/ [Interacting]
     Indication: OSTEOARTHRITIS
     Dosage: 575 MG, AS NEEDED
     Route: 048
  6. TELMISARTAN AND HYDROCHLOROTHIAZIDE [Interacting]
     Indication: HYPERTENSIVE HEART DISEASE
     Dosage: [TELMISARTAN 80 MG]/[HYDROCHLOROTHIAZIDE 12.5 MG], 1X/DAY
     Route: 048
     Dates: end: 20120318
  7. ARTEDIL [Interacting]
     Indication: HYPERTENSIVE HEART DISEASE
     Dosage: 10 MG, 1X/DAY
     Route: 048
     Dates: end: 20120318

REACTIONS (4)
  - HYPOTENSION [None]
  - DYSPNOEA [None]
  - DRUG INTERACTION [None]
  - RIGHT VENTRICULAR FAILURE [None]
